APPROVED DRUG PRODUCT: PROPAFENONE HYDROCHLORIDE
Active Ingredient: PROPAFENONE HYDROCHLORIDE
Strength: 300MG
Dosage Form/Route: TABLET;ORAL
Application: A075938 | Product #003 | TE Code: AB
Applicant: STRIDES PHARMA INTERNATIONAL AG
Approved: Oct 17, 2002 | RLD: No | RS: Yes | Type: RX